FAERS Safety Report 26055306 (Version 2)
Quarter: 2025Q4

REPORT INFORMATION
  Report Type: Spontaneous
  Country: PK (occurrence: PK)
  Receive Date: 20251117
  Receipt Date: 20251210
  Transmission Date: 20260117
  Serious: Yes (Life-Threatening)
  Sender: BAUSCH AND LOMB
  Company Number: PK-BAUSCH-BH-2025-019981

PATIENT
  Age: 64 Year
  Sex: Female

DRUGS (24)
  1. METFORMIN [Interacting]
     Active Substance: METFORMIN HYDROCHLORIDE
     Indication: Diabetes mellitus
     Route: 065
  2. METFORMIN [Interacting]
     Active Substance: METFORMIN HYDROCHLORIDE
     Dosage: IN MORNING
     Route: 065
     Dates: start: 20231215
  3. PREGABALIN [Interacting]
     Active Substance: PREGABALIN
     Indication: Analgesic therapy
     Route: 048
     Dates: start: 202312
  4. GABAPENTIN [Interacting]
     Active Substance: GABAPENTIN
     Indication: Analgesic therapy
     Route: 048
     Dates: start: 202312
  5. NALBUPHINE [Interacting]
     Active Substance: NALBUPHINE
     Indication: Analgesic therapy
     Route: 048
     Dates: start: 202312
  6. FENTANYL [Interacting]
     Active Substance: FENTANYL
     Indication: Analgesic therapy
     Route: 048
     Dates: start: 202312
  7. TRAMADOL [Interacting]
     Active Substance: TRAMADOL
     Indication: Analgesic therapy
     Route: 048
     Dates: start: 202312
  8. TRAMADOL [Interacting]
     Active Substance: TRAMADOL
     Route: 048
     Dates: start: 202312
  9. ASPIRIN [Interacting]
     Active Substance: ASPIRIN
     Indication: Product used for unknown indication
     Route: 065
  10. ACETAMINOPHEN [Interacting]
     Active Substance: ACETAMINOPHEN
     Indication: Analgesic therapy
     Dosage: HS
     Route: 048
     Dates: start: 202312
  11. ACETAMINOPHEN [Interacting]
     Active Substance: ACETAMINOPHEN
     Dosage: HS
     Route: 048
     Dates: start: 202312
  12. ACETAMINOPHEN [Interacting]
     Active Substance: ACETAMINOPHEN
     Dosage: HS
     Route: 048
     Dates: start: 202312
  13. ACETAMINOPHEN [Interacting]
     Active Substance: ACETAMINOPHEN
     Dosage: IN MORNING
     Route: 048
     Dates: start: 20231215
  14. AMLODIPINE\VALSARTAN [Interacting]
     Active Substance: AMLODIPINE\VALSARTAN
     Indication: Hypertension
     Route: 065
  15. AMLODIPINE\VALSARTAN [Interacting]
     Active Substance: AMLODIPINE\VALSARTAN
     Dosage: 5/160 MG BEFORE BREAKFAST
     Route: 065
     Dates: start: 20231215
  16. PREGABALIN [Interacting]
     Active Substance: PREGABALIN
     Indication: Analgesic therapy
     Dosage: HS
     Route: 048
     Dates: start: 202312
  17. KETOROLAC TROMETHAMINE [Interacting]
     Active Substance: KETOROLAC TROMETHAMINE
     Indication: Analgesic therapy
     Dosage: HS (TAKEN SELF) AT NIGHT
     Dates: start: 202312
  18. CALCIUM [Concomitant]
     Active Substance: CALCIUM
     Indication: Product used for unknown indication
  19. CEPHALEXIN MONOHYDRATE [Concomitant]
     Active Substance: CEPHALEXIN MONOHYDRATE
     Indication: Product used for unknown indication
  20. CEPHALEXIN MONOHYDRATE [Concomitant]
     Active Substance: CEPHALEXIN MONOHYDRATE
     Dosage: IN MORNING
     Dates: start: 20231215
  21. LEVOTHYROXINE SODIUM [Concomitant]
     Active Substance: LEVOTHYROXINE SODIUM
     Indication: Hypothyroidism
  22. LEVOTHYROXINE SODIUM [Concomitant]
     Active Substance: LEVOTHYROXINE SODIUM
     Dates: start: 20231215
  23. VITAMIN D3 [Concomitant]
     Active Substance: CHOLECALCIFEROL
     Indication: Product used for unknown indication
  24. MENAQUINONE 6 [Concomitant]
     Active Substance: MENAQUINONE 6
     Indication: Product used for unknown indication

REACTIONS (2)
  - Hypoglycaemia [Unknown]
  - Drug interaction [Unknown]

NARRATIVE: CASE EVENT DATE: 20231215
